FAERS Safety Report 5132150-9 (Version None)
Quarter: 2006Q4

REPORT INFORMATION
  Report Type: 
  Country: None (occurrence: None)
  Receive Date: 20061017
  Receipt Date: 20061007
  Transmission Date: 20070319
  Serious: Yes (Other)
  Sender: FDA-Public Use
  Company Number: 2006121885

PATIENT
  Age: 38 Year
  Sex: Female
  Weight: 106.5953 kg

DRUGS (1)
  1. DRAMAMINE [Suspect]
     Dosage: 24 TABLETS ONCE, ORAL
     Route: 048
     Dates: start: 20061006, end: 20061006

REACTIONS (3)
  - HALLUCINATION [None]
  - INCORRECT DOSE ADMINISTERED [None]
  - INSOMNIA [None]
